APPROVED DRUG PRODUCT: MINOXIDIL (FOR WOMEN)
Active Ingredient: MINOXIDIL
Strength: 5%
Dosage Form/Route: AEROSOL, FOAM;TOPICAL
Application: A208092 | Product #002
Applicant: P AND L DEVELOPMENT LLC
Approved: Jul 27, 2017 | RLD: No | RS: No | Type: OTC